FAERS Safety Report 7372381-0 (Version None)
Quarter: 2011Q1

REPORT INFORMATION
  Report Type: 
  Country: None (occurrence: None)
  Receive Date: 20110324
  Receipt Date: 20110315
  Transmission Date: 20110831
  Serious: Yes (Other)
  Sender: FDA-Public Use
  Company Number: BE-JNJFOC-20110306878

PATIENT
  Sex: Male

DRUGS (1)
  1. NICORETTE MICROTAB 2MG [Suspect]
     Indication: SMOKING CESSATION THERAPY
     Dosage: 10 TABLETS PER DAY; 150 PIECES PER WEEK
     Route: 060

REACTIONS (2)
  - GASTRIC DISORDER [None]
  - DEPENDENCE [None]
